FAERS Safety Report 20433410 (Version 1)
Quarter: 2022Q1

REPORT INFORMATION
  Report Type: Spontaneous
  Country: FR (occurrence: FR)
  Receive Date: 20220205
  Receipt Date: 20220205
  Transmission Date: 20220423
  Serious: Yes (Hospitalization, Other)
  Sender: FDA-Public Use
  Company Number: FR-AFSSAPS-TS20220221

PATIENT
  Age: 13 Year
  Sex: Female
  Weight: 50 kg

DRUGS (3)
  1. ACETAMINOPHEN [Suspect]
     Active Substance: ACETAMINOPHEN
     Indication: Poisoning deliberate
     Dosage: 8 GRAM 1 TOTAL
     Route: 048
     Dates: start: 20210524, end: 20210524
  2. IBUPROFEN [Concomitant]
     Active Substance: IBUPROFEN
     Indication: Poisoning deliberate
     Dosage: 800 MILLIGRAM 1 TOTAL
     Route: 048
     Dates: start: 20210524, end: 20210524
  3. LOPERAMIDE [Concomitant]
     Active Substance: LOPERAMIDE
     Indication: Poisoning deliberate
     Dosage: 1 TOTAL
     Route: 048
     Dates: start: 20210524, end: 20210524

REACTIONS (2)
  - Hepatic cytolysis [Recovered/Resolved]
  - Poisoning deliberate [Recovered/Resolved]

NARRATIVE: CASE EVENT DATE: 20210524
